FAERS Safety Report 6274987-9 (Version None)
Quarter: 2009Q3

REPORT INFORMATION
  Report Type: 
  Country: None (occurrence: None)
  Receive Date: 20090721
  Receipt Date: 20090715
  Transmission Date: 20100115
  Serious: Yes (Other)
  Sender: FDA-Public Use
  Company Number: US-ASTRAZENECA-2009UW12919

PATIENT
  Age: 76 Year
  Sex: Female
  Weight: 81.6 kg

DRUGS (3)
  1. SEROQUEL [Suspect]
     Indication: DEPRESSION
     Dosage: 300 MG TO 500 MG
     Route: 048
     Dates: start: 20040101
  2. SEROQUEL [Suspect]
     Indication: INSOMNIA
     Dosage: 300 MG TO 500 MG
     Route: 048
     Dates: start: 20040101
  3. SEROQUEL [Suspect]
     Indication: DELUSIONAL DISORDER, UNSPECIFIED TYPE
     Dosage: 300 MG TO 500 MG
     Route: 048
     Dates: start: 20040101

REACTIONS (3)
  - ANAEMIA [None]
  - GASTROINTESTINAL HAEMORRHAGE [None]
  - TYPE 2 DIABETES MELLITUS [None]
